FAERS Safety Report 7261429-X (Version None)
Quarter: 2011Q1

REPORT INFORMATION
  Report Type: 
  Country: None (occurrence: None)
  Receive Date: 20110130
  Receipt Date: 20100929
  Transmission Date: 20110831
  Serious: No
  Sender: FDA-Public Use
  Company Number: US-ABBOTT-10P-163-0674807-00

PATIENT
  Age: 30 Year
  Sex: Female

DRUGS (4)
  1. NECON [Concomitant]
     Indication: CONTRACEPTION
  2. METHOTREXATE [Concomitant]
     Indication: PRODUCT USED FOR UNKNOWN INDICATION
  3. VITAMIN D [Concomitant]
     Indication: PRODUCT USED FOR UNKNOWN INDICATION
     Dosage: DAILY
  4. HUMIRA [Suspect]
     Indication: ANKYLOSING SPONDYLITIS
     Dates: start: 20100801

REACTIONS (4)
  - NASOPHARYNGITIS [None]
  - FEELING ABNORMAL [None]
  - SINUS HEADACHE [None]
  - SINUS CONGESTION [None]
